FAERS Safety Report 15735022 (Version 1)
Quarter: 2018Q4

REPORT INFORMATION
  Report Type: Spontaneous
  Country: MX (occurrence: MX)
  Receive Date: 20181218
  Receipt Date: 20181218
  Transmission Date: 20190205
  Serious: Yes (Other)
  Sender: FDA-Public Use
  Company Number: MX-SUPERNUS PHARMACEUTICALS, INC.-2018SUP00344

PATIENT
  Age: 17 Year
  Sex: Male

DRUGS (1)
  1. EXPLIGA XR [Suspect]
     Active Substance: TOPIRAMATE
     Indication: EPILEPSY
     Dosage: 25 MG, 1X/DAY
     Route: 048
     Dates: start: 20181008, end: 20181009

REACTIONS (2)
  - Syncope [Recovered/Resolved]
  - Headache [Recovered/Resolved]

NARRATIVE: CASE EVENT DATE: 20181008
